FAERS Safety Report 7817067-0 (Version None)
Quarter: 2011Q4

REPORT INFORMATION
  Report Type: 
  Country: None (occurrence: None)
  Receive Date: 20111014
  Receipt Date: 20111014
  Transmission Date: 20120403
  Serious: No
  Sender: FDA-Public Use
  Company Number: None

PATIENT
  Sex: Male
  Weight: 63.5036 kg

DRUGS (1)
  1. ACETAZOLAMIDE [Suspect]
     Indication: LABYRINTHITIS
     Dosage: ONE (1) A DAY BY MOUTH
     Route: 048
     Dates: start: 20110901, end: 20110914

REACTIONS (7)
  - HEADACHE [None]
  - GAIT DISTURBANCE [None]
  - DYSPNOEA [None]
  - VISION BLURRED [None]
  - DYSPEPSIA [None]
  - FATIGUE [None]
  - SOMNOLENCE [None]
